FAERS Safety Report 6161291-2 (Version None)
Quarter: 2009Q2

REPORT INFORMATION
  Report Type: 
  Country: None (occurrence: None)
  Receive Date: 20090421
  Receipt Date: 20071016
  Transmission Date: 20091009
  Serious: Yes (Hospitalization, Other)
  Sender: FDA-Public Use
  Company Number: US-ASTRAZENECA-2006UW06083

PATIENT
  Age: 510 Month
  Sex: Male
  Weight: 166.9 kg

DRUGS (19)
  1. SEROQUEL [Suspect]
     Indication: INSOMNIA
     Dosage: 25-300MG
     Route: 048
     Dates: start: 20050706, end: 20061001
  2. ABILIFY [Concomitant]
  3. GEODON [Concomitant]
  4. ELAVIL [Concomitant]
  5. REMERON [Concomitant]
  6. ATIVAN [Concomitant]
  7. ZOLOFT [Concomitant]
  8. XANAX [Concomitant]
  9. RESTORIL [Concomitant]
  10. TRAZODONE HCL [Concomitant]
  11. FLEXERIL [Concomitant]
  12. GLUCOPHAGE [Concomitant]
  13. TEGRETOL [Concomitant]
  14. SOMA [Concomitant]
  15. CYMBALTA [Concomitant]
  16. LEXAPRO [Concomitant]
  17. LANTUS [Concomitant]
  18. GLYBURIDE [Concomitant]
  19. HUMALOG [Concomitant]

REACTIONS (7)
  - BLOOD PRESSURE INCREASED [None]
  - DIABETES MELLITUS [None]
  - DIABETES MELLITUS INADEQUATE CONTROL [None]
  - DIABETIC KETOACIDOSIS [None]
  - KETOACIDOSIS [None]
  - MYALGIA [None]
  - POLYURIA [None]
